FAERS Safety Report 12726537 (Version 1)
Quarter: 2016Q3

REPORT INFORMATION
  Report Type: Spontaneous
  Country: MX (occurrence: MX)
  Receive Date: 20160908
  Receipt Date: 20160908
  Transmission Date: 20161109
  Serious: Yes (Hospitalization, Other)
  Sender: FDA-Public Use
  Company Number: MX-SA-2016SA162476

PATIENT
  Sex: Female
  Weight: 60 kg

DRUGS (2)
  1. FLOTAC /CHL/ [Concomitant]
     Indication: ARTHRALGIA
     Route: 048
     Dates: start: 2006
  2. ARAVA [Suspect]
     Active Substance: LEFLUNOMIDE
     Indication: RHEUMATOID ARTHRITIS
     Route: 048
     Dates: start: 2006

REACTIONS (2)
  - Xerophthalmia [Not Recovered/Not Resolved]
  - Dry skin [Not Recovered/Not Resolved]
